FAERS Safety Report 9421983 (Version 1)
Quarter: 2013Q3

REPORT INFORMATION
  Report Type: Spontaneous
  Country: RU (occurrence: RU)
  Receive Date: 20130726
  Receipt Date: 20130726
  Transmission Date: 20140515
  Serious: Yes (Other)
  Sender: FDA-Public Use
  Company Number: RU-JNJFOC-20130710124

PATIENT
  Age: 62 Year
  Sex: Male

DRUGS (1)
  1. DUROGESIC [Suspect]
     Indication: ANALGESIC THERAPY
     Route: 062

REACTIONS (1)
  - Acute psychosis [Unknown]
